FAERS Safety Report 10778448 (Version 4)
Quarter: 2015Q2

REPORT INFORMATION
  Report Type: Spontaneous
  Country: JP (occurrence: JP)
  Receive Date: 20150209
  Receipt Date: 20150423
  Transmission Date: 20150821
  Serious: Yes (Death, Other)
  Sender: FDA-Public Use
  Company Number: JP-ROCHE-1535027

PATIENT
  Age: 75 Year
  Sex: Female
  Weight: 50 kg

DRUGS (5)
  1. 5-FU [Suspect]
     Active Substance: FLUOROURACIL
     Indication: COLON CANCER RECURRENT
     Dosage: DOSAGE IS UNCERTAIN.
     Route: 040
     Dates: start: 20140930, end: 20150115
  2. CALCIUM LEVOFOLINATE [Suspect]
     Active Substance: LEVOLEUCOVORIN CALCIUM
     Indication: COLON CANCER RECURRENT
     Dosage: DOSAGE IS UNCERTAIN.
     Route: 041
     Dates: start: 20140930, end: 20150115
  3. ELPLAT [Suspect]
     Active Substance: OXALIPLATIN
     Indication: COLON CANCER RECURRENT
     Dosage: DOSAGE IS UNCERTAIN.
     Route: 041
     Dates: start: 20140930
  4. 5-FU [Suspect]
     Active Substance: FLUOROURACIL
     Indication: COLON CANCER RECURRENT
     Dosage: DOSAGE IS UNCERTAIN.
     Route: 041
     Dates: start: 20140930, end: 20150115
  5. AVASTIN [Suspect]
     Active Substance: BEVACIZUMAB
     Indication: COLON CANCER RECURRENT
     Route: 041
     Dates: start: 20140930, end: 20150115

REACTIONS (3)
  - Disseminated intravascular coagulation [Fatal]
  - Pneumonia [Unknown]
  - Interstitial lung disease [Fatal]

NARRATIVE: CASE EVENT DATE: 2015
